FAERS Safety Report 9169221 (Version 2)
Quarter: 2013Q1

REPORT INFORMATION
  Report Type: Report from Study
  Country: DE (occurrence: DE)
  Receive Date: 20130318
  Receipt Date: 20130328
  Transmission Date: 20140127
  Serious: Yes (Other)
  Sender: FDA-Public Use
  Company Number: DE-ROCHE-1201491

PATIENT
  Age: 51 Year
  Sex: Female
  Weight: 67 kg

DRUGS (12)
  1. TOCILIZUMAB [Suspect]
     Indication: RHEUMATOID ARTHRITIS
     Route: 042
     Dates: start: 20110330, end: 20110608
  2. PREDNISOLUT [Suspect]
     Indication: PREMEDICATION
     Route: 042
     Dates: start: 20120618, end: 20120618
  3. MABTHERA [Concomitant]
     Indication: RHEUMATOID ARTHRITIS
     Route: 042
     Dates: start: 20111124
  4. MABTHERA [Concomitant]
     Route: 042
     Dates: start: 20111208
  5. DICLOFENAC [Concomitant]
     Route: 065
     Dates: start: 201012
  6. TILIDIN [Concomitant]
     Route: 065
     Dates: start: 201101
  7. PREDNISOLON [Concomitant]
     Route: 065
  8. PREDNISOLON [Concomitant]
     Route: 065
  9. METOHEXAL [Concomitant]
     Indication: HYPERTENSION
  10. PANTOZOL [Concomitant]
     Route: 065
  11. CALCICARE-D3 [Concomitant]
  12. ABATACEPT [Concomitant]
     Route: 065
     Dates: start: 20110706, end: 20111024

REACTIONS (2)
  - Orthostatic intolerance [Recovered/Resolved]
  - Drug ineffective [Unknown]
